FAERS Safety Report 9558693 (Version 1)
Quarter: 2013Q3

REPORT INFORMATION
  Report Type: Spontaneous
  Country: US (occurrence: US)
  Receive Date: 20130926
  Receipt Date: 20130926
  Transmission Date: 20140515
  Serious: No
  Sender: FDA-Public Use
  Company Number: US-BIOGENIDEC-2013BI046121

PATIENT
  Age: 44 Year
  Sex: Female

DRUGS (4)
  1. TECFIDERA [Suspect]
     Indication: MULTIPLE SCLEROSIS
     Route: 048
     Dates: start: 20130516
  2. TYSABRI [Concomitant]
     Dates: start: 20111110, end: 20130506
  3. THYROID MEDICATION [Concomitant]
     Indication: DECREASED ACTIVITY
  4. AVONEX [Concomitant]
     Indication: MULTIPLE SCLEROSIS

REACTIONS (4)
  - Pruritus [Unknown]
  - Rash [Unknown]
  - Erythema [Unknown]
  - Burning sensation [Unknown]
